FAERS Safety Report 10418846 (Version 1)
Quarter: 2014Q2

REPORT INFORMATION
  Report Type: Spontaneous
  Country: US (occurrence: None)
  Receive Date: 20140617
  Receipt Date: 20140617
  Transmission Date: 20141212
  Serious: Yes (Other)
  Sender: FDA-Public Use
  Company Number: 1251326

PATIENT
  Age: 52 Year
  Sex: Female
  Weight: 74.8 kg

DRUGS (9)
  1. ACTERMA 5% TWO INFUSION DOSES [Suspect]
     Indication: RHEUMATOID ARTHRITIS
     Dosage: 400MG/20ML (4 MG/KG, 1 IN 4 WK), INTRAVENOUS (NOT OTHERWISE SPECIFIED)
     Route: 042
     Dates: start: 20111020
  2. DIOVAN HCT (HYDROCHLOROTHIAZIDE, VALSARTAN) [Concomitant]
  3. FOLIC ACID [Concomitant]
  4. LEUCOVORIN CALCIUM (CALCIUM FOLINATE) [Concomitant]
  5. LYRICA (PREGABALIN) [Concomitant]
  6. METHOTREXATE [Concomitant]
  7. NAPROSYN (NAPROXEN) (TABLET) [Concomitant]
  8. PRILOSEC OTC (OMEPRAZOLE) [Concomitant]
  9. TRAMADOL HCL [Concomitant]

REACTIONS (1)
  - Neutropenia [None]
